FAERS Safety Report 15357447 (Version 1)
Quarter: 2018Q3

REPORT INFORMATION
  Report Type: Spontaneous
  Country: US (occurrence: US)
  Receive Date: 20180906
  Receipt Date: 20180906
  Transmission Date: 20181010
  Serious: No
  Sender: FDA-Public Use
  Company Number: US-MAYNE PHARMA-2018MYN000351

PATIENT

DRUGS (3)
  1. CLOTRIMAZOLE. [Concomitant]
     Active Substance: CLOTRIMAZOLE
     Indication: RASH
     Dosage: UNK
     Route: 061
  2. STATIN                             /00036501/ [Concomitant]
     Active Substance: NYSTATIN
     Indication: ORAL CANDIDIASIS
     Dosage: UNK
     Route: 048
  3. NYSTATIN. [Suspect]
     Active Substance: NYSTATIN
     Indication: RASH
     Dosage: UNK
     Route: 061

REACTIONS (2)
  - Product adhesion issue [Unknown]
  - Drug ineffective [Unknown]
